FAERS Safety Report 9699212 (Version 2)
Quarter: 2013Q4

REPORT INFORMATION
  Report Type: Spontaneous
  Country: US (occurrence: US)
  Receive Date: 20131120
  Receipt Date: 20131120
  Transmission Date: 20140711
  Serious: No
  Sender: FDA-Public Use
  Company Number: US-GILEAD-2008-0014936

PATIENT
  Age: 43 Year
  Sex: Female
  Weight: 68.04 kg

DRUGS (1)
  1. LETAIRIS [Suspect]
     Indication: PULMONARY ARTERIAL HYPERTENSION
     Route: 048
     Dates: start: 20071010

REACTIONS (3)
  - Oropharyngeal pain [Recovered/Resolved]
  - Flushing [Recovered/Resolved]
  - Headache [Not Recovered/Not Resolved]
